FAERS Safety Report 22331307 (Version 2)
Quarter: 2023Q2

REPORT INFORMATION
  Report Type: Report from Study
  Country: FI (occurrence: FI)
  Receive Date: 20230517
  Receipt Date: 20230615
  Transmission Date: 20230722
  Serious: Yes (Hospitalization)
  Sender: FDA-Public Use
  Company Number: FI-SERVIER-S23004990

PATIENT

DRUGS (20)
  1. IVOSIDENIB [Suspect]
     Active Substance: IVOSIDENIB
     Indication: Product used for unknown indication
     Dates: start: 20230425, end: 20230505
  2. CYTARABINE [Suspect]
     Active Substance: CYTARABINE
     Indication: Product used for unknown indication
     Dosage: 3470 MG, QD
     Route: 065
     Dates: start: 20230425, end: 20230430
  3. DAUNORUBICIN [Suspect]
     Active Substance: DAUNORUBICIN
     Indication: Product used for unknown indication
     Dosage: 112 MG, UNKNOWN
     Route: 065
     Dates: start: 20230425, end: 20230427
  4. SELEGILINE [Concomitant]
     Active Substance: SELEGILINE
     Indication: Product used for unknown indication
     Dosage: 5 MG, QD
     Route: 048
     Dates: start: 20211109
  5. BENSERAZIDE HYDROCHLORIDE\LEVODOPA [Concomitant]
     Active Substance: BENSERAZIDE HYDROCHLORIDE\LEVODOPA
     Indication: Product used for unknown indication
     Dosage: 100/25 MG, BID
     Route: 048
     Dates: start: 20211222
  6. SILDENAFIL [Concomitant]
     Active Substance: SILDENAFIL
     Indication: Product used for unknown indication
     Dosage: 50-100 MG PRN
     Route: 065
     Dates: start: 20220719
  7. RAMIPRIL [Concomitant]
     Active Substance: RAMIPRIL
     Indication: Product used for unknown indication
     Dosage: 2.5 MG, PRN
     Route: 065
     Dates: start: 20221031
  8. CHOLECALCIFEROL [Concomitant]
     Active Substance: CHOLECALCIFEROL
     Indication: Product used for unknown indication
     Dosage: 100 UNK, QD
     Route: 065
     Dates: start: 20221109
  9. ACETAMINOPHEN [Concomitant]
     Active Substance: ACETAMINOPHEN
     Indication: Product used for unknown indication
     Dosage: 1000 MG, PRN
     Route: 065
     Dates: start: 20230419
  10. ZOPICLONE [Concomitant]
     Active Substance: ZOPICLONE
     Indication: Product used for unknown indication
     Dosage: 7.5 MG, PRN
     Route: 048
     Dates: start: 20230424
  11. ISOSORBIDE DINITRATE [Concomitant]
     Active Substance: ISOSORBIDE DINITRATE
     Indication: Product used for unknown indication
     Dosage: 1.25 MG, PRN
     Route: 065
     Dates: start: 20230424
  12. ONDANSETRON [Concomitant]
     Active Substance: ONDANSETRON
     Indication: Product used for unknown indication
     Dosage: 8 MG, PRN
     Route: 048
     Dates: start: 20230425
  13. SALICYLIC ACID [Concomitant]
     Active Substance: SALICYLIC ACID
     Indication: Product used for unknown indication
     Dosage: 100 MG, QD
     Route: 048
     Dates: start: 20230502
  14. TRAMADOL [Concomitant]
     Active Substance: TRAMADOL
     Indication: Product used for unknown indication
     Dosage: 50 MG, PRN
     Route: 048
     Dates: start: 20230502
  15. ROSUVASTATIN [Concomitant]
     Active Substance: ROSUVASTATIN
     Indication: Product used for unknown indication
     Dosage: 20 MG X1, EVERY OTHER DAY
     Route: 048
     Dates: start: 20230502
  16. ROSUVASTATIN [Concomitant]
     Active Substance: ROSUVASTATIN
     Dosage: 40 MG X 1, EVERY OTHER DAY
     Route: 048
     Dates: start: 20230502
  17. ASPIRIN [Concomitant]
     Active Substance: ASPIRIN
     Indication: Product used for unknown indication
     Dosage: 100 MG X1, QD
     Route: 048
     Dates: start: 20230502
  18. FUROSEMIDE [Concomitant]
     Active Substance: FUROSEMIDE
     Indication: Product used for unknown indication
     Dosage: 10 MG X 2, UNK
     Route: 048
     Dates: start: 20230502
  19. POTASSIUM CHLORIDE [Concomitant]
     Active Substance: POTASSIUM CHLORIDE
     Indication: Product used for unknown indication
     Dosage: 100 MG, QD
     Route: 048
     Dates: start: 20230429
  20. BISOPROLOL [Concomitant]
     Active Substance: BISOPROLOL
     Indication: Product used for unknown indication
     Dosage: 2,5 MG X 3, PNR
     Route: 065
     Dates: start: 20230424

REACTIONS (1)
  - Pneumocystis jirovecii infection [Recovered/Resolved]

NARRATIVE: CASE EVENT DATE: 20230506
